FAERS Safety Report 13190434 (Version 1)
Quarter: 2017Q1

REPORT INFORMATION
  Report Type: Report from Study
  Country: FR (occurrence: FR)
  Receive Date: 20170206
  Receipt Date: 20170206
  Transmission Date: 20170428
  Serious: No
  Sender: FDA-Public Use
  Company Number: FR-JNJFOC-20170202914

PATIENT
  Age: 5 Decade
  Sex: Male
  Weight: 112 kg

DRUGS (3)
  1. XYZALL [Concomitant]
     Active Substance: LEVOCETIRIZINE DIHYDROCHLORIDE
     Route: 048
     Dates: start: 20150625
  2. VENTOLINE [Concomitant]
     Active Substance: ALBUTEROL
     Route: 065
  3. STELARA [Suspect]
     Active Substance: USTEKINUMAB
     Indication: PSORIASIS
     Route: 058
     Dates: start: 20140520, end: 20170112

REACTIONS (2)
  - Pruritus [Not Recovered/Not Resolved]
  - Drug effect decreased [Not Recovered/Not Resolved]
